FAERS Safety Report 7382215-6 (Version None)
Quarter: 2011Q1

REPORT INFORMATION
  Report Type: 
  Country: None (occurrence: None)
  Receive Date: 20110329
  Receipt Date: 20101229
  Transmission Date: 20110831
  Serious: No
  Sender: FDA-Public Use
  Company Number: US-BAYER-2011-026244

PATIENT
  Sex: Male
  Weight: 101 kg

DRUGS (14)
  1. GLYBURIDE [Concomitant]
  2. LIPITOR [Concomitant]
  3. DIOVAN [Concomitant]
  4. PHILLIPS' COLON HEALTH [Suspect]
     Indication: CONSTIPATION
     Dosage: UNK
     Dates: start: 20110101
  5. PLAVIX [Concomitant]
  6. FUROSEMIDE [Concomitant]
  7. METFORMIN HCL [Concomitant]
  8. BAYER ASPIRIN REGIMEN ADULT LOW STRENGTH [Concomitant]
  9. PANTOPRAZOLE SODIUM [Concomitant]
  10. RANEXA [Concomitant]
  11. ATENOLOL [Concomitant]
  12. FISH OIL [Concomitant]
  13. ASCORBIC ACID [Concomitant]
  14. SAW PALMETTO [Concomitant]

REACTIONS (1)
  - PROSTATIC SPECIFIC ANTIGEN INCREASED [None]
